FAERS Safety Report 13905482 (Version 4)
Quarter: 2019Q1

REPORT INFORMATION
  Report Type: Spontaneous
  Country: NL (occurrence: NL)
  Receive Date: 20170825
  Receipt Date: 20190109
  Transmission Date: 20190417
  Serious: Yes (Other)
  Sender: FDA-Public Use
  Company Number: NL-ALIMERA SCIENCES LIMITED-NL-IL-2017-003690

PATIENT

DRUGS (2)
  1. ILUVIEN [Suspect]
     Active Substance: FLUOCINOLONE ACETONIDE
     Indication: MACULAR OEDEMA
     Dosage: 0.25 ?G, QD, RIGHT EYE
     Route: 031
     Dates: start: 20170623
  2. ILUVIEN [Suspect]
     Active Substance: FLUOCINOLONE ACETONIDE
     Dosage: 0.25 ?G, UNK, RIGHT EYE
     Route: 031
     Dates: start: 2014

REACTIONS (7)
  - Visual acuity reduced [Recovered/Resolved]
  - Intraocular pressure decreased [Unknown]
  - Dyschromatopsia [Unknown]
  - Visual field defect [Unknown]
  - Retinal pigment epithelial tear [Unknown]
  - Off label use [Unknown]
  - Metamorphopsia [Unknown]

NARRATIVE: CASE EVENT DATE: 2014
